FAERS Safety Report 5830365-5 (Version None)
Quarter: 2008Q3

REPORT INFORMATION
  Report Type: 
  Country: None (occurrence: None)
  Receive Date: 20080801
  Receipt Date: 20080724
  Transmission Date: 20090109
  Serious: Yes (Death, Hospitalization)
  Sender: FDA-Public Use
  Company Number: GB-ROCHE-577482

PATIENT
  Sex: Female

DRUGS (4)
  1. CAPECITABINE [Suspect]
     Route: 065
     Dates: end: 20080715
  2. ERLOTINIB [Suspect]
     Route: 065
     Dates: start: 20080610, end: 20080715
  3. BEVACIZUMAB [Suspect]
     Route: 065
     Dates: end: 20080715
  4. GEMCITABINE [Suspect]
     Route: 065
     Dates: end: 20080715

REACTIONS (5)
  - GASTROINTESTINAL HAEMORRHAGE [None]
  - GENERAL PHYSICAL HEALTH DETERIORATION [None]
  - HAEMOGLOBIN INCREASED [None]
  - SOMNOLENCE [None]
  - VOMITING [None]
